FAERS Safety Report 24053499 (Version 1)
Quarter: 2024Q3

REPORT INFORMATION
  Report Type: Spontaneous
  Country: US (occurrence: US)
  Receive Date: 20240705
  Receipt Date: 20240705
  Transmission Date: 20241017
  Serious: Yes (Life-Threatening, Other)
  Sender: HIKMA
  Company Number: US-MLMSERVICE-20240613-PI099876-00306-1

PATIENT
  Age: 82 Year
  Sex: Female

DRUGS (4)
  1. MYCOPHENOLIC ACID [Suspect]
     Active Substance: MYCOPHENOLIC ACID
     Indication: Immunosuppressant drug therapy
     Dosage: UNK
     Route: 065
  2. PREDNISONE [Suspect]
     Active Substance: PREDNISONE
     Indication: Immunosuppressant drug therapy
     Dosage: UNK
     Route: 065
  3. TACROLIMUS [Suspect]
     Active Substance: TACROLIMUS
     Indication: Immunosuppressant drug therapy
     Dosage: UNK
     Route: 065
  4. BELATACEPT [Concomitant]
     Active Substance: BELATACEPT
     Indication: Renal impairment
     Dosage: UNK
     Route: 065

REACTIONS (1)
  - Post transplant lymphoproliferative disorder [Unknown]
